FAERS Safety Report 5708194-2 (Version None)
Quarter: 2008Q2

REPORT INFORMATION
  Report Type: 
  Country: None (occurrence: None)
  Receive Date: 20080414
  Receipt Date: 20080331
  Transmission Date: 20081010
  Serious: Yes (Hospitalization)
  Sender: FDA-Public Use
  Company Number: GXKR2008TR03280

PATIENT
  Age: 4 Year
  Sex: Male

DRUGS (1)
  1. AMITRIPTLINE HCL [Suspect]
     Indication: ACCIDENTAL EXPOSURE
     Dosage: 20 MG/KG, ONCE/SINGLE, ORAL
     Route: 048

REACTIONS (2)
  - ACCIDENTAL OVERDOSE [None]
  - COMA [None]
